FAERS Safety Report 18596076 (Version 4)
Quarter: 2021Q1

REPORT INFORMATION
  Report Type: Spontaneous
  Country: US (occurrence: US)
  Receive Date: 20201209
  Receipt Date: 20210219
  Transmission Date: 20210419
  Serious: Yes (Other)
  Sender: FDA-Public Use
  Company Number: US-PFIZER INC-2019125401

PATIENT
  Age: 71 Year
  Sex: Female
  Weight: 81 kg

DRUGS (2)
  1. PREMARIN [Suspect]
     Active Substance: ESTROGENS, CONJUGATED
     Indication: VULVOVAGINAL DRYNESS
     Dosage: 0.5 G, UNK (1/2 GRAM PER VAGINAL TIW)
     Route: 067
  2. PREMARIN [Suspect]
     Active Substance: ESTROGENS, CONJUGATED
     Dosage: UNK, 2X/WEEK (PUT ON TWICE A WEEK)

REACTIONS (6)
  - Wrong technique in product usage process [Unknown]
  - Product use issue [Unknown]
  - Blindness [Unknown]
  - Off label use [Unknown]
  - Throat irritation [Unknown]
  - Frustration tolerance decreased [Unknown]
